FAERS Safety Report 16918655 (Version 1)
Quarter: 2019Q4

REPORT INFORMATION
  Report Type: Spontaneous
  Country: JP (occurrence: JP)
  Receive Date: 20191015
  Receipt Date: 20191015
  Transmission Date: 20200122
  Serious: Yes (Other)
  Sender: FDA-Public Use
  Company Number: JP-PFIZER INC-2019442699

PATIENT
  Sex: Female

DRUGS (23)
  1. LEXOTAN [Concomitant]
     Active Substance: BROMAZEPAM
     Indication: OBSESSIVE THOUGHTS
     Dosage: 5 MG, UNK
  2. GENTACIN [Concomitant]
     Active Substance: GENTAMICIN SULFATE
     Dosage: UNK
  3. DEPAS [ETIZOLAM] [Concomitant]
     Active Substance: ETIZOLAM
     Indication: AUTONOMIC NERVOUS SYSTEM IMBALANCE
     Dosage: 0.5 MG, UNK
  4. TRAVELMIN [DIPHENHYDRAMINE SALICYLATE;DIPROPHYLLINE] [Concomitant]
     Dosage: UNK
  5. RIZE [CLOTIAZEPAM] [Concomitant]
     Active Substance: CLOTIAZEPAM
     Indication: DIZZINESS
     Dosage: 5 MG, UNK
  6. LUDIOMIL [MAPROTILINE HYDROCHLORIDE] [Concomitant]
     Indication: DEPRESSION
     Dosage: UNK, 2X/DAY (IN THE MORNING AND EVENING)
  7. PRIMPERAN COMPLEX [DIMETICONE;METOCLOPRAMIDE HYDROCHLORIDE] [Concomitant]
     Dosage: UNK
  8. CYMBALTA [Concomitant]
     Active Substance: DULOXETINE HYDROCHLORIDE
     Dosage: UNK
  9. BI-SIFROL [Concomitant]
     Active Substance: PRAMIPEXOLE
     Indication: RESTLESS LEGS SYNDROME
     Dosage: UNK
  10. HUSCODE [Concomitant]
     Active Substance: CHLORPHENIRAMINE MALEATE\DIHYDROCODEINE PHOSPHATE\METHYLEPHEDRINE HYDROCHLORIDE, DL-
     Dosage: UNK
  11. METGLUCO [Concomitant]
     Active Substance: METFORMIN HYDROCHLORIDE
     Dosage: UNK
  12. LOXONIN [Concomitant]
     Active Substance: LOXOPROFEN SODIUM
     Dosage: UNK
  13. NEUOMIL [Concomitant]
     Active Substance: MAPROTILINE HYDROCHLORIDE
     Dosage: UNK
  14. LYRICA [Suspect]
     Active Substance: PREGABALIN
     Dosage: UNK
  15. LUDIOMIL [MAPROTILINE HYDROCHLORIDE] [Concomitant]
     Indication: ANXIETY
     Dosage: 50 MG, 1X/DAY
  16. MERISLON [Concomitant]
     Active Substance: BETAHISTINE MESILATE
     Dosage: UNK
  17. KETOCONAZOLE. [Concomitant]
     Active Substance: KETOCONAZOLE
     Dosage: UNK
  18. LAXOBERON [Concomitant]
     Active Substance: SODIUM PICOSULFATE
     Indication: CONSTIPATION
     Dosage: UNK
  19. BAKTAR [Concomitant]
     Active Substance: SULFAMETHOXAZOLE\TRIMETHOPRIM
     Dosage: UNK
  20. LUDIOMIL [MAPROTILINE HYDROCHLORIDE] [Concomitant]
     Indication: TENSION
     Dosage: 50 MG, 1X/DAY
  21. MAGNESIUM OXIDE. [Concomitant]
     Active Substance: MAGNESIUM OXIDE
     Dosage: UNK
  22. HALCION [Concomitant]
     Active Substance: TRIAZOLAM
     Dosage: UNK
  23. INSULIN [Concomitant]
     Active Substance: INSULIN NOS
     Dosage: UNK

REACTIONS (1)
  - Subarachnoid haemorrhage [Unknown]
